FAERS Safety Report 7552573-8 (Version None)
Quarter: 2011Q2

REPORT INFORMATION
  Report Type: 
  Country: None (occurrence: None)
  Receive Date: 20110616
  Receipt Date: 20110314
  Transmission Date: 20111010
  Serious: No
  Sender: FDA-Public Use
  Company Number: US-MYLANLABS-2011S1005516

PATIENT
  Age: 69 Year
  Sex: Male

DRUGS (7)
  1. METFORMIN HCL [Concomitant]
     Indication: DIABETES MELLITUS
     Route: 048
  2. LIPITOR [Concomitant]
     Route: 048
  3. DIVALPROEX SODIUM [Suspect]
     Indication: TOURETTE'S DISORDER
     Route: 048
     Dates: start: 20090101, end: 20100601
  4. PROZAC [Concomitant]
     Indication: MYOCLONUS
     Route: 048
  5. DIVALPROEX SODIUM [Suspect]
     Route: 048
     Dates: start: 20100601, end: 20110221
  6. DIVALPROEX SODIUM [Suspect]
     Route: 048
     Dates: start: 20110221
  7. AMLODIPINE [Concomitant]
     Indication: BLOOD PRESSURE INCREASED
     Route: 048

REACTIONS (4)
  - INTENTIONAL DRUG MISUSE [None]
  - AMNESIA [None]
  - ANTICONVULSANT DRUG LEVEL DECREASED [None]
  - CONFUSIONAL STATE [None]
